FAERS Safety Report 7016667-8 (Version None)
Quarter: 2010Q3

REPORT INFORMATION
  Report Type: 
  Country: None (occurrence: None)
  Receive Date: 20100927
  Receipt Date: 20100917
  Transmission Date: 20110219
  Serious: Yes (Hospitalization)
  Sender: FDA-Public Use
  Company Number: GR-ABBOTT-09P-066-0605685-00

PATIENT
  Sex: Female
  Weight: 55 kg

DRUGS (3)
  1. HUMIRA [Suspect]
     Indication: CROHN'S DISEASE
     Route: 058
     Dates: start: 20080621, end: 20090407
  2. HUMIRA [Suspect]
     Route: 058
  3. PREDNISOLONE [Concomitant]
     Indication: CROHN'S DISEASE
     Dates: start: 20090415

REACTIONS (1)
  - CROHN'S DISEASE [None]
